FAERS Safety Report 9108371 (Version 2)
Quarter: 2013Q2

REPORT INFORMATION
  Report Type: Spontaneous
  Country: AU (occurrence: AU)
  Receive Date: 20130222
  Receipt Date: 20130416
  Transmission Date: 20140414
  Serious: Yes (Other)
  Sender: FDA-Public Use
  Company Number: AU-ABBOTT-13P-008-1053558-00

PATIENT
  Age: 9 Year
  Sex: Female

DRUGS (1)
  1. EPILIM [Suspect]
     Indication: PRODUCT USED FOR UNKNOWN INDICATION
     Dosage: UNKNOWN
     Route: 065

REACTIONS (4)
  - Nuclear magnetic resonance imaging brain abnormal [Recovering/Resolving]
  - Malaise [Recovering/Resolving]
  - Cognitive disorder [Unknown]
  - Cerebral atrophy [Unknown]
